FAERS Safety Report 9659261 (Version 2)
Quarter: 2014Q1

REPORT INFORMATION
  Report Type: Spontaneous
  Country: US (occurrence: US)
  Receive Date: 20131031
  Receipt Date: 20140214
  Transmission Date: 20141002
  Serious: Yes (Hospitalization, Other)
  Sender: FDA-Public Use
  Company Number: US-009507513-1310USA010348

PATIENT
  Age: 68 Year
  Sex: Male

DRUGS (5)
  1. TICE BCG LIVE [Suspect]
     Indication: BLADDER CANCER
     Dosage: UNK
     Route: 043
     Dates: start: 201209, end: 201209
  2. TICE BCG LIVE [Suspect]
     Dosage: UNK
     Route: 043
     Dates: start: 20131014, end: 20131014
  3. TICE BCG LIVE [Suspect]
     Dosage: UNK
     Route: 043
     Dates: start: 20131021
  4. OXYCODONE [Concomitant]
     Dosage: UNK
  5. VITAMINS (UNSPECIFIED) [Concomitant]
     Dosage: UNK
     Dates: start: 201301

REACTIONS (10)
  - Fall [Unknown]
  - Dialysis [Unknown]
  - Head injury [Unknown]
  - Delusion [Unknown]
  - Hallucination [Unknown]
  - Blood creatinine increased [Unknown]
  - Renal failure [Unknown]
  - Dialysis [Unknown]
  - Speech disorder [Unknown]
  - Road traffic accident [Unknown]
